FAERS Safety Report 6143077-8 (Version None)
Quarter: 2009Q2

REPORT INFORMATION
  Report Type: 
  Country: None (occurrence: None)
  Receive Date: 20090401
  Receipt Date: 20090401
  Transmission Date: 20091009
  Serious: Yes (Hospitalization)
  Sender: FDA-Public Use
  Company Number: None

PATIENT
  Age: 59 Year
  Sex: Male

DRUGS (1)
  1. SUBOXONE [Suspect]
     Indication: DRUG DETOXIFICATION
     Dosage: 1 TAB ONCE SUBLINGUAL
     Route: 060
     Dates: start: 20090330, end: 20090330

REACTIONS (5)
  - ABDOMINAL PAIN UPPER [None]
  - DRUG WITHDRAWAL SYNDROME [None]
  - HYPERTENSION [None]
  - PAIN IN EXTREMITY [None]
  - VOMITING [None]
